FAERS Safety Report 9040764 (Version 3)
Quarter: 2013Q2

REPORT INFORMATION
  Report Type: Spontaneous
  Country: US (occurrence: US)
  Receive Date: 20130129
  Receipt Date: 20130411
  Transmission Date: 20140414
  Serious: Yes (Other)
  Sender: FDA-Public Use
  Company Number: US-JNJFOC-20130111318

PATIENT
  Sex: Male
  Weight: 86.18 kg

DRUGS (4)
  1. HALDOL [Suspect]
     Indication: SCHIZOPHRENIA
     Dosage: 20 MG 2 TABLETS IN AM AND 20 MG ONE TABLET IN PM
     Route: 048
  2. HALDOL [Suspect]
     Indication: SCHIZOPHRENIA
     Route: 048
     Dates: start: 2006
  3. ZYPREXA [Suspect]
     Indication: DELUSION
     Route: 065
     Dates: start: 19990426
  4. ZYPREXA [Suspect]
     Indication: SCHIZOPHRENIA
     Route: 065
     Dates: start: 19990426

REACTIONS (8)
  - Loss of consciousness [Unknown]
  - Blood pressure decreased [Unknown]
  - Tremor [Not Recovered/Not Resolved]
  - Blood cholesterol [Unknown]
  - Gastrooesophageal reflux disease [Unknown]
  - Abnormal dreams [Not Recovered/Not Resolved]
  - Mental impairment [Unknown]
  - Drug ineffective [Not Recovered/Not Resolved]
